FAERS Safety Report 9146474 (Version 1)
Quarter: 2013Q1

REPORT INFORMATION
  Report Type: Spontaneous
  Country: US (occurrence: US)
  Receive Date: 20130307
  Receipt Date: 20130307
  Transmission Date: 20140127
  Serious: No
  Sender: FDA-Public Use
  Company Number: US-GLAXOSMITHKLINE-A0965899A

PATIENT
  Age: 60 Year
  Sex: Male

DRUGS (3)
  1. REQUIP [Suspect]
     Indication: RESTLESS LEGS SYNDROME
     Dosage: 1MG AS REQUIRED
     Route: 048
     Dates: start: 2001
  2. REQUIP [Suspect]
     Indication: PARKINSON^S DISEASE
     Dosage: 3MG AS REQUIRED
     Route: 048
     Dates: start: 2001
  3. AMITRIPTYLINE [Concomitant]

REACTIONS (4)
  - Drug ineffective [Not Recovered/Not Resolved]
  - Foaming at mouth [Unknown]
  - Malaise [Unknown]
  - Product quality issue [Unknown]
